FAERS Safety Report 4927722-8 (Version None)
Quarter: 2006Q1

REPORT INFORMATION
  Report Type: 
  Country: None (occurrence: None)
  Receive Date: 20060222
  Receipt Date: 20060201
  Transmission Date: 20060701
  Serious: Yes (Hospitalization)
  Sender: FDA-Public Use
  Company Number: D-06-0012

PATIENT
  Age: 79 Year
  Sex: Male

DRUGS (4)
  1. JANTOVEN 5 MG (USL) [Suspect]
     Indication: ATRIAL FIBRILLATION
     Dosage: SEE IMAGE
     Route: 048
     Dates: start: 20050101
  2. VERAPAMIL (CONTIN) [Concomitant]
  3. DIGOXIN (CONTIN) [Concomitant]
  4. LEVOTHYROXINE                        (CONTIN) [Concomitant]

REACTIONS (3)
  - DEHYDRATION [None]
  - DIARRHOEA [None]
  - INTERNATIONAL NORMALISED RATIO FLUCTUATION [None]
